FAERS Safety Report 20134617 (Version 4)
Quarter: 2021Q4

REPORT INFORMATION
  Report Type: Report from Study
  Country: CH (occurrence: CH)
  Receive Date: 20211201
  Receipt Date: 20211229
  Transmission Date: 20220303
  Serious: Yes (Life-Threatening, Other)
  Sender: FDA-Public Use
  Company Number: CH-BAYER-2021A249838

PATIENT
  Age: 43 Year
  Sex: Female

DRUGS (2)
  1. MIRENA [Suspect]
     Active Substance: LEVONORGESTREL
     Indication: Heavy menstrual bleeding
     Dosage: 20?G/DAY
     Route: 015
     Dates: start: 20211108, end: 20211109
  2. PIROXICAM [Suspect]
     Active Substance: PIROXICAM
     Indication: Prophylaxis
     Dosage: 40 MG, ONCE

REACTIONS (10)
  - Angioedema [Recovered/Resolved]
  - Device allergy [Recovering/Resolving]
  - Rash [Recovering/Resolving]
  - Circulatory collapse [Recovering/Resolving]
  - Muscular weakness [Unknown]
  - Face oedema [Recovered/Resolved]
  - Eye oedema [None]
  - Pharyngeal oedema [Recovered/Resolved]
  - Discomfort [Recovered/Resolved]
  - Dyspnoea [Recovered/Resolved]

NARRATIVE: CASE EVENT DATE: 20211108
